FAERS Safety Report 7420902-1 (Version None)
Quarter: 2011Q2

REPORT INFORMATION
  Report Type: 
  Country: None (occurrence: None)
  Receive Date: 20110418
  Receipt Date: 20110411
  Transmission Date: 20111010
  Serious: Yes (Death)
  Sender: FDA-Public Use
  Company Number: A0923183A

PATIENT
  Sex: Female

DRUGS (2)
  1. TYKERB [Suspect]
     Dosage: 1250MGD PER DAY
     Route: 048
     Dates: start: 20101001, end: 20110317
  2. CAPECITABINE [Suspect]
     Dosage: 3000MGD PER DAY
     Route: 048
     Dates: start: 20101001, end: 20110317

REACTIONS (2)
  - FATIGUE [None]
  - DEATH [None]
